FAERS Safety Report 15361738 (Version 1)
Quarter: 2018Q3

REPORT INFORMATION
  Report Type: Report from Study
  Country: FR (occurrence: FR)
  Receive Date: 20180907
  Receipt Date: 20180907
  Transmission Date: 20181010
  Serious: Yes (Hospitalization)
  Sender: FDA-Public Use
  Company Number: FR-PFIZER INC-2018355364

PATIENT
  Age: 44 Year
  Sex: Male
  Weight: 52 kg

DRUGS (12)
  1. FLUOROURACIL. [Suspect]
     Active Substance: FLUOROURACIL
     Dosage: UNK
     Route: 042
     Dates: start: 20180314, end: 20180314
  2. CALCIUM FOLINATE [Suspect]
     Active Substance: LEUCOVORIN CALCIUM
     Indication: COLORECTAL CANCER METASTATIC
     Dosage: UNK
     Route: 042
  3. BIONOLYTE [Concomitant]
     Dosage: UNK
  4. IRINOTECAN HCL [Suspect]
     Active Substance: IRINOTECAN HYDROCHLORIDE
     Indication: COLORECTAL CANCER METASTATIC
     Dosage: UNK
     Route: 042
  5. AFLIBERCEPT [Suspect]
     Active Substance: AFLIBERCEPT
     Indication: COLORECTAL CANCER METASTATIC
     Dosage: UNK
     Route: 042
  6. AFLIBERCEPT [Suspect]
     Active Substance: AFLIBERCEPT
     Dosage: UNK
     Route: 042
     Dates: start: 20180314, end: 20180314
  7. INNOHEP [Concomitant]
     Active Substance: TINZAPARIN SODIUM
     Dosage: UNK
  8. IRINOTECAN HCL [Suspect]
     Active Substance: IRINOTECAN HYDROCHLORIDE
     Dosage: UNK
     Route: 042
     Dates: start: 20180314, end: 20180314
  9. ZARZIO [Concomitant]
     Active Substance: FILGRASTIM
     Dosage: UNK
  10. FLUOROURACIL. [Suspect]
     Active Substance: FLUOROURACIL
     Indication: COLORECTAL CANCER METASTATIC
     Dosage: UNK
     Route: 042
  11. CALCIUM FOLINATE [Suspect]
     Active Substance: LEUCOVORIN CALCIUM
     Dosage: UNK
     Route: 042
     Dates: start: 20180314, end: 20180314
  12. ZELBORAF [Concomitant]
     Active Substance: VEMURAFENIB
     Dosage: 960 MG, UNK
     Route: 048

REACTIONS (1)
  - Dehydration [Recovered/Resolved]

NARRATIVE: CASE EVENT DATE: 20180708
